FAERS Safety Report 6153075-6 (Version None)
Quarter: 2009Q2

REPORT INFORMATION
  Report Type: 
  Country: None (occurrence: None)
  Receive Date: 20090413
  Receipt Date: 20090402
  Transmission Date: 20091009
  Serious: Yes (Death)
  Sender: FDA-Public Use
  Company Number: US-ELI_LILLY_AND_COMPANY-US200904000678

PATIENT
  Age: 52 Year
  Sex: Male
  Weight: 137.42 kg

DRUGS (14)
  1. PROZAC [Suspect]
     Indication: DEPRESSION
     Dosage: 40 MG, UNKNOWN
     Route: 065
  2. OPANA [Concomitant]
     Dosage: 30 MG, 2/D
     Route: 065
  3. LUNESTA [Concomitant]
     Indication: SLEEP DISORDER
     Dosage: 3 MG, UNKNOWN
     Route: 048
  4. LISINOPRIL + HIDROCLOROTIAZIDA [Concomitant]
     Indication: HYPERTENSION
     Dosage: UNK, DAILY (1/D)
     Route: 048
  5. METHOTREXATE [Concomitant]
     Dosage: 2.5 MG, 3/W
     Route: 065
  6. ATENOLOL [Concomitant]
     Indication: HYPERTENSION
     Dosage: 25 MG, DAILY (1/D)
     Route: 048
  7. CARISOPRODOL [Concomitant]
     Dosage: 350 MG, 3/D
     Route: 048
  8. FORADIL [Concomitant]
     Dosage: UNK, 2/D
     Route: 055
  9. HYDROXIZINE [Concomitant]
     Dosage: 50 MG, 4/D
     Route: 048
  10. NABUMETONE [Concomitant]
     Dosage: 750 MG, 2/D
     Route: 048
  11. SEROQUEL [Concomitant]
     Dosage: 800 MG, UNKNOWN
     Route: 048
  12. REQUIP [Concomitant]
     Dosage: 0.5 MG, UNKNOWN
     Route: 048
  13. AMITRIPTYLINE HCL [Concomitant]
     Dosage: 25 MG, UNKNOWN
     Route: 048
  14. HYDROCODONE BITARTRATE [Concomitant]
     Indication: PAIN
     Dosage: UNK, 2/D
     Route: 065

REACTIONS (1)
  - DEATH [None]
